FAERS Safety Report 24735227 (Version 1)
Quarter: 2024Q4

REPORT INFORMATION
  Report Type: Spontaneous
  Country: DE (occurrence: DE)
  Receive Date: 20241215
  Receipt Date: 20241215
  Transmission Date: 20250115
  Serious: No
  Sender: ROCHE
  Company Number: DE-ROCHE-3308206

PATIENT
  Sex: Female

DRUGS (1)
  1. OCREVUS [Suspect]
     Active Substance: OCRELIZUMAB
     Indication: Secondary progressive multiple sclerosis
     Route: 042

REACTIONS (8)
  - Nasopharyngitis [Unknown]
  - Decreased immune responsiveness [Unknown]
  - Off label use [Unknown]
  - Fatigue [Unknown]
  - Rhinorrhoea [Unknown]
  - Listless [Unknown]
  - Gait inability [Not Recovered/Not Resolved]
  - COVID-19 [Unknown]
